FAERS Safety Report 11534431 (Version 1)
Quarter: 2015Q3

REPORT INFORMATION
  Report Type: Report from Study
  Country: AU (occurrence: AU)
  Receive Date: 20150922
  Receipt Date: 20150922
  Transmission Date: 20151125
  Serious: Yes (Other)
  Sender: FDA-Public Use
  Company Number: PHHY2015AU024498

PATIENT
  Sex: Female

DRUGS (2)
  1. SANDOSTATIN LAR DEPOT [Suspect]
     Active Substance: OCTREOTIDE ACETATE
     Indication: ACROMEGALY
     Dosage: 10 MG, EVERY 5 WEEKS
     Route: 030
  2. SANDOSTATIN LAR DEPOT [Suspect]
     Active Substance: OCTREOTIDE ACETATE
     Dosage: 10 MG, EVERY 6 WEEKS
     Route: 030

REACTIONS (18)
  - Decreased activity [Unknown]
  - Somnolence [Unknown]
  - Blood cholesterol increased [Unknown]
  - Lower respiratory tract infection [Recovering/Resolving]
  - Asthenia [Unknown]
  - Joint swelling [Unknown]
  - Glucose tolerance increased [Unknown]
  - Blood pressure increased [Unknown]
  - Feeling abnormal [Unknown]
  - Underdose [Unknown]
  - Fatigue [Unknown]
  - Malaise [Unknown]
  - Oedema peripheral [Not Recovered/Not Resolved]
  - Erythema [Unknown]
  - Pain in jaw [Unknown]
  - Peripheral swelling [Recovering/Resolving]
  - Inappropriate schedule of drug administration [Unknown]
  - Off label use [Unknown]
